FAERS Safety Report 21167151 (Version 4)
Quarter: 2023Q1

REPORT INFORMATION
  Report Type: Spontaneous
  Country: US (occurrence: US)
  Receive Date: 20220803
  Receipt Date: 20230228
  Transmission Date: 20230417
  Serious: Yes (Other)
  Sender: FDA-Public Use
  Company Number: US-PFIZER INC-PV202200013057

PATIENT
  Age: 24 Year
  Sex: Female

DRUGS (3)
  1. SOMAVERT [Suspect]
     Active Substance: PEGVISOMANT
     Indication: Acromegaly
     Dosage: 10 MG, 1X/DAY
     Route: 058
     Dates: start: 202103
  2. SOMAVERT [Suspect]
     Active Substance: PEGVISOMANT
     Dosage: 10 MG, 1X/DAY
     Route: 058
     Dates: start: 202301
  3. LANREOTIDE [Concomitant]
     Active Substance: LANREOTIDE
     Dosage: UNK

REACTIONS (2)
  - Nasal septum disorder [Unknown]
  - Administration site scar [Unknown]

NARRATIVE: CASE EVENT DATE: 20211001
